FAERS Safety Report 7728123-X (Version None)
Quarter: 2011Q3

REPORT INFORMATION
  Report Type: 
  Country: None (occurrence: None)
  Receive Date: 20110905
  Receipt Date: 20110829
  Transmission Date: 20111222
  Serious: Yes (Other)
  Sender: FDA-Public Use
  Company Number: DE-AMGEN-DEUSP2011027456

PATIENT
  Age: 51 Year
  Sex: Male
  Weight: 104 kg

DRUGS (2)
  1. ENBREL [Suspect]
     Indication: RHEUMATOID ARTHRITIS
     Dosage: 50 MG, WEEKLY
     Route: 058
     Dates: start: 20110201, end: 20110501
  2. PERENTEROL                         /00243701/ [Concomitant]
     Indication: DIARRHOEA
     Dosage: UNK

REACTIONS (6)
  - RASH MACULAR [None]
  - RASH [None]
  - ERYTHEMA [None]
  - SKIN BURNING SENSATION [None]
  - KERATITIS [None]
  - DIARRHOEA [None]
